FAERS Safety Report 15620333 (Version 1)
Quarter: 2018Q4

REPORT INFORMATION
  Report Type: Spontaneous
  Country: SE (occurrence: SE)
  Receive Date: 20181115
  Receipt Date: 20181115
  Transmission Date: 20190205
  Serious: Yes (Other)
  Sender: FDA-Public Use
  Company Number: SE-TEVA-2018-SE-975292

PATIENT
  Age: 75 Year
  Sex: Male

DRUGS (5)
  1. SIMIDON [Concomitant]
     Active Substance: SIMVASTATIN
     Route: 065
     Dates: start: 201604
  2. TROMBYL [Concomitant]
     Active Substance: ASPIRIN
     Route: 065
     Dates: start: 201601
  3. AMLODIPINE [Suspect]
     Active Substance: AMLODIPINE BESYLATE
     Indication: ESSENTIAL HYPERTENSION
     Dosage: 10 MILLIGRAM DAILY;
     Route: 065
  4. PERSANTIN [Concomitant]
     Active Substance: DIPYRIDAMOLE
     Route: 065
     Dates: start: 201604
  5. METOPROLOL. [Concomitant]
     Active Substance: METOPROLOL
     Route: 065
     Dates: start: 201604

REACTIONS (1)
  - Gynaecomastia [Not Recovered/Not Resolved]

NARRATIVE: CASE EVENT DATE: 201808
